FAERS Safety Report 8668547 (Version 2)
Quarter: 2014Q1

REPORT INFORMATION
  Report Type: Spontaneous
  Country: BR (occurrence: BR)
  Receive Date: 20120717
  Receipt Date: 20140212
  Transmission Date: 20141002
  Serious: Yes (Life-Threatening, Hospitalization)
  Sender: FDA-Public Use
  Company Number: BR-ARROW-2012-12088

PATIENT
  Age: 18 Year
  Sex: Male

DRUGS (3)
  1. AMLODIPINE (UNKNOWN) [Suspect]
     Dosage: 30 OF 5 MG TABS
     Route: 048
  2. HYDROCHLOROTHIAZIDE (WATSON LABORATORIES)(HYDROCHLOROTHIAZIDE) UNK, UNKUNK [Suspect]
     Indication: PRODUCT USED FOR UNKNOWN INDICATION
     Dosage: 12 OF 25 MG TABS
     Route: 048
  3. FLUNARIZINE [Suspect]
     Dosage: 25 OF 10 MG TABS
     Route: 048

REACTIONS (10)
  - Arrhythmia [Recovered/Resolved]
  - Atrioventricular block [Recovered/Resolved]
  - Bundle branch block left [Recovered/Resolved]
  - Pulmonary oedema [Recovered/Resolved]
  - Overdose [Recovered/Resolved]
  - Toxicity to various agents [Recovered/Resolved]
  - Suicide attempt [Recovered/Resolved]
  - Hyperglycaemia [Recovered/Resolved]
  - Anuria [Recovered/Resolved]
  - Hypotension [Recovered/Resolved]
